FAERS Safety Report 9425687 (Version 1)
Quarter: 2013Q3

REPORT INFORMATION
  Report Type: Report from Study
  Country: US (occurrence: US)
  Receive Date: 20130729
  Receipt Date: 20130729
  Transmission Date: 20140515
  Serious: Yes (Hospitalization)
  Sender: FDA-Public Use
  Company Number: US-ACTELION-A-US2012-70883

PATIENT
  Age: 50 Year
  Sex: Female

DRUGS (4)
  1. TRACLEER [Suspect]
     Indication: PULMONARY ARTERIAL HYPERTENSION
     Dosage: UNK
     Route: 048
  2. TRACLEER [Suspect]
     Dosage: UNK
     Route: 048
  3. SILDENAFIL [Concomitant]
  4. COUMADIN [Concomitant]

REACTIONS (10)
  - Hysterectomy [Unknown]
  - Uterine leiomyoma embolisation [Unknown]
  - Uterine infection [Unknown]
  - Computerised tomogram [Unknown]
  - Pyrexia [Unknown]
  - Small intestinal obstruction [Unknown]
  - Drug dose omission [Unknown]
  - Anaemia [Unknown]
  - Haemoglobin decreased [Unknown]
  - Transfusion [Unknown]
